FAERS Safety Report 8520497-5 (Version None)
Quarter: 2012Q3

REPORT INFORMATION
  Report Type: 
  Country: None (occurrence: None)
  Receive Date: 20120709
  Receipt Date: 20120623
  Transmission Date: 20120928
  Serious: Yes (Hospitalization)
  Sender: FDA-Public Use
  Company Number: 2012AP001954

PATIENT
  Age: 58 Year
  Sex: Male

DRUGS (2)
  1. CARVEDILOL [Suspect]
     Indication: PRODUCT USED FOR UNKNOWN INDICATION
     Dosage: 6.25 MG;QD
  2. DRONEDARONE HCL [Suspect]
     Indication: ATRIAL FIBRILLATION
     Dosage: 400 MG;BID

REACTIONS (9)
  - BRADYCARDIA [None]
  - CONFUSIONAL STATE [None]
  - ELECTROCARDIOGRAM QT PROLONGED [None]
  - BLOOD PRESSURE INCREASED [None]
  - VENTRICULAR EXTRASYSTOLES [None]
  - DRUG INTERACTION [None]
  - CHEST PAIN [None]
  - SYNCOPE [None]
  - DIZZINESS [None]
